FAERS Safety Report 6109929-X (Version None)
Quarter: 2009Q1

REPORT INFORMATION
  Report Type: 
  Country: None (occurrence: None)
  Receive Date: 20090310
  Receipt Date: 20080901
  Transmission Date: 20090719
  Serious: No
  Sender: FDA-Public Use
  Company Number: A0745325A

PATIENT
  Sex: Female

DRUGS (1)
  1. NICORETTE [Suspect]
     Indication: DRUG USE FOR UNKNOWN INDICATION

REACTIONS (3)
  - DYSPNOEA [None]
  - PANIC ATTACK [None]
  - SENSATION OF FOREIGN BODY [None]
